FAERS Safety Report 13687859 (Version 2)
Quarter: 2017Q2

REPORT INFORMATION
  Report Type: Report from Study
  Country: None (occurrence: CA)
  Receive Date: 20170626
  Receipt Date: 20170627
  Transmission Date: 20170830
  Serious: Yes (Hospitalization)
  Sender: FDA-Public Use
  Company Number: CA-ABBVIE-17K-028-2014356-00

PATIENT
  Sex: Male

DRUGS (2)
  1. HUMIRA [Suspect]
     Active Substance: ADALIMUMAB
     Indication: CROHN^S DISEASE
     Route: 058
     Dates: start: 20150706, end: 201706
  2. HUMIRA [Suspect]
     Active Substance: ADALIMUMAB
     Dosage: FIRST RELOADING DOSE
     Route: 058
     Dates: start: 20170621, end: 20170621

REACTIONS (2)
  - Gastrointestinal stenosis [Unknown]
  - Gastrointestinal obstruction [Unknown]
